FAERS Safety Report 8830536 (Version 1)
Quarter: 2012Q4

REPORT INFORMATION
  Report Type: 
  Country: US (occurrence: US)
  Receive Date: 20121009
  Receipt Date: 20121009
  Transmission Date: 20130627
  Serious: Yes (Other)
  Sender: FDA-Public Use
  Company Number: US-JNJFOC-20121004069

PATIENT
  Sex: Female

DRUGS (5)
  1. MOTRIN IB [Suspect]
     Route: 048
  2. MOTRIN IB [Suspect]
     Indication: ARTHRITIS
     Dosage: 200mg/ caplet
     Route: 048
  3. METOPROLOL [Concomitant]
     Indication: HEART RATE IRREGULAR
     Route: 065
  4. TIMOPTIC [Concomitant]
     Indication: GLAUCOMA
     Route: 065
  5. XALANTAN [Concomitant]
     Indication: GLAUCOMA
     Route: 065

REACTIONS (3)
  - Rectal haemorrhage [Recovered/Resolved]
  - Anorectal discomfort [Recovered/Resolved]
  - Abdominal discomfort [Recovered/Resolved]
